FAERS Safety Report 24367768 (Version 1)
Quarter: 2024Q3

REPORT INFORMATION
  Report Type: Spontaneous
  Country: US (occurrence: None)
  Receive Date: 20240926
  Receipt Date: 20240926
  Transmission Date: 20241016
  Serious: Yes (Life-Threatening, Hospitalization)
  Sender: Public
  Company Number: None

PATIENT
  Age: 38 Year
  Sex: Female
  Weight: 60.75 kg

DRUGS (3)
  1. LAMOTRIGINE [Suspect]
     Active Substance: LAMOTRIGINE
     Indication: Anxiety
     Dosage: OTHER QUANTITY : 2 TABLET(S);?FREQUENCY : TWICE A DAY;?
     Route: 048
     Dates: start: 20240420, end: 20240516
  2. NEXPLANON [Concomitant]
  3. birth control [Concomitant]

REACTIONS (6)
  - Stevens-Johnson syndrome [None]
  - Eye excision [None]
  - Post-traumatic stress disorder [None]
  - Deformity [None]
  - Impaired work ability [None]
  - General physical health deterioration [None]

NARRATIVE: CASE EVENT DATE: 20240516
